FAERS Safety Report 6015089-6 (Version None)
Quarter: 2008Q4

REPORT INFORMATION
  Report Type: 
  Country: None (occurrence: None)
  Receive Date: 20081218
  Receipt Date: 20081210
  Transmission Date: 20090506
  Serious: No
  Sender: FDA-Public Use
  Company Number: 2008-044

PATIENT
  Sex: Male

DRUGS (2)
  1. LARYNG-O-JET KIT [Suspect]
     Route: 061
     Dates: start: 20080711
  2. LTA II KIT [Suspect]
     Indication: ENDOTRACHEAL INTUBATION
     Route: 061

REACTIONS (1)
  - DEVICE BREAKAGE [None]
